FAERS Safety Report 9964485 (Version 1)
Quarter: 2014Q1

REPORT INFORMATION
  Report Type: Spontaneous
  Country: US (occurrence: US)
  Receive Date: 20140305
  Receipt Date: 20140305
  Transmission Date: 20141002
  Serious: No
  Sender: FDA-Public Use
  Company Number: US-ENDO PHARMACEUTICALS INC.-MYZI20140001

PATIENT
  Age: 23 Year
  Sex: Female

DRUGS (1)
  1. MYZILRA TABLETS [Suspect]
     Indication: PRODUCT USED FOR UNKNOWN INDICATION
     Dosage: 1 TABLET
     Route: 048
     Dates: end: 2013

REACTIONS (1)
  - Metrorrhagia [Recovered/Resolved]
